FAERS Safety Report 7601526-X (Version None)
Quarter: 2011Q3

REPORT INFORMATION
  Report Type: 
  Country: None (occurrence: None)
  Receive Date: 20110711
  Receipt Date: 20110614
  Transmission Date: 20111222
  Serious: Yes (Other)
  Sender: FDA-Public Use
  Company Number: PHHY2011AU51409

PATIENT
  Sex: Female

DRUGS (1)
  1. CLOZAPINE [Suspect]
     Dosage: 100 MG
     Dates: start: 20110517, end: 20110605

REACTIONS (7)
  - TROPONIN INCREASED [None]
  - MYOCARDITIS [None]
  - C-REACTIVE PROTEIN INCREASED [None]
  - SEDATION [None]
  - LYMPHOPENIA [None]
  - SALIVARY HYPERSECRETION [None]
  - CLAUSTROPHOBIA [None]
